FAERS Safety Report 23095538 (Version 1)
Quarter: 2023Q4

REPORT INFORMATION
  Report Type: Report from Study
  Country: TH (occurrence: None)
  Receive Date: 20231023
  Receipt Date: 20231023
  Transmission Date: 20240110
  Serious: Yes (Life-Threatening, Hospitalization)
  Sender: FDA-Public Use
  Company Number: TH-ROCHE-3056557

PATIENT
  Age: 60 Year
  Sex: Female
  Weight: 61 kg

DRUGS (11)
  1. ATEZOLIZUMAB [Suspect]
     Active Substance: ATEZOLIZUMAB
     Indication: Triple negative breast cancer
     Dosage: ON 15/MAR/2022,SHE RECEIVED THE MOST RECENT DOSE OF 840 MG ATEZOLIZUMAB PRIOR TO AE AND SAE ONSET?84
     Route: 041
     Dates: start: 20211103
  2. PACLITAXEL [Suspect]
     Active Substance: PACLITAXEL
     Indication: Triple negative breast cancer
     Dosage: ON 18/JAN/2022,SHE RECEIVED MOST RECENT DOSE OF PACLITAXEL DOSE OF 130 MG PRIOR TO AE AND SAE ONSET.
     Route: 042
     Dates: start: 20211103
  3. DOXORUBICIN [Suspect]
     Active Substance: DOXORUBICIN
     Indication: Triple negative breast cancer
     Dosage: ON 15/MAR/2022,SHE RECEIVED THE MOST RECENT DOSE 100 MG OF DOXORUBICIN PRIOR TO AE AND SAE ONSET.?60
     Route: 042
     Dates: start: 20220125
  4. CYCLOPHOSPHAMIDE [Suspect]
     Active Substance: CYCLOPHOSPHAMIDE
     Indication: Triple negative breast cancer
     Dosage: ON 15/MAR/2022,SHE RECEIVED THE MOST RECENT DOSE OF 1000MG CYCLOPHOSPHAMIDE PRIOR TO AE AND SAE ONSE
     Route: 042
     Dates: start: 20220125
  5. FILGRASTIM [Suspect]
     Active Substance: FILGRASTIM
     Indication: Triple negative breast cancer
     Dosage: CYCLE 4 VISIT 1
     Route: 058
     Dates: start: 20220126, end: 20220130
  6. FILGRASTIM [Suspect]
     Active Substance: FILGRASTIM
     Dosage: CYCLE 4 VISIT 2
     Route: 058
     Dates: start: 20220216, end: 20220220
  7. FILGRASTIM [Suspect]
     Active Substance: FILGRASTIM
     Dosage: CYCLE 5 VISIT 1
     Route: 058
     Dates: start: 20220302, end: 20220306
  8. FILGRASTIM [Suspect]
     Active Substance: FILGRASTIM
     Dosage: CYCLE 5, VISIT 2
     Route: 058
     Dates: start: 20220316, end: 20220320
  9. FAVIPIRAVIR [Concomitant]
     Active Substance: FAVIPIRAVIR
     Dates: start: 20220318, end: 20220322
  10. CEFTAZIDIME [Concomitant]
     Active Substance: CEFTAZIDIME
     Dates: start: 20220318, end: 20220322
  11. PIPERACILLIN SODIUM\TAZOBACTAM SODIUM [Concomitant]
     Active Substance: PIPERACILLIN SODIUM\TAZOBACTAM SODIUM
     Dates: start: 20220323

REACTIONS (2)
  - Lymphocyte count decreased [Recovered/Resolved]
  - COVID-19 [Recovered/Resolved]

NARRATIVE: CASE EVENT DATE: 20220318
